FAERS Safety Report 10190950 (Version 1)
Quarter: 2014Q2

REPORT INFORMATION
  Report Type: Spontaneous
  Country: US (occurrence: US)
  Receive Date: 20140523
  Receipt Date: 20140523
  Transmission Date: 20141212
  Serious: No
  Sender: FDA-Public Use
  Company Number: US-009507513-1405USA010395

PATIENT
  Sex: Female

DRUGS (10)
  1. SINGULAIR [Suspect]
     Indication: HYPERSENSITIVITY
     Dosage: UNK
     Route: 048
  2. CLARINEX [Suspect]
     Indication: HYPERSENSITIVITY
     Dosage: UNK
  3. FLONASE [Concomitant]
     Indication: HYPERSENSITIVITY
     Dosage: UNK
  4. ASTELIN (AZELASTINE HYDROCHLORIDE) [Concomitant]
     Indication: HYPERSENSITIVITY
     Dosage: UNK
  5. ASCORBIC ACID [Concomitant]
     Dosage: UNK
  6. VITAMIN E [Concomitant]
     Dosage: UNK
  7. MILK THISTLE [Concomitant]
     Dosage: UNK
  8. OMEGA-3 MARINE TRIGLYCERIDES [Concomitant]
  9. MAGNESIUM (UNSPECIFIED) [Concomitant]
     Dosage: UNK
  10. BIRTH CONTROL PILLS [Concomitant]
     Dosage: UNK

REACTIONS (3)
  - Visual impairment [Not Recovered/Not Resolved]
  - Eye disorder [Not Recovered/Not Resolved]
  - Lacrimal disorder [Not Recovered/Not Resolved]
